FAERS Safety Report 24717128 (Version 4)
Quarter: 2025Q3

REPORT INFORMATION
  Report Type: Report from Study
  Country: EU (occurrence: EU)
  Receive Date: 20241210
  Receipt Date: 20250730
  Transmission Date: 20251021
  Serious: Yes (Other)
  Sender: MYLAN
  Company Number: EU-BRISTOL-MYERS SQUIBB COMPANY-2024-180924

PATIENT
  Age: 57 Year
  Sex: Male

DRUGS (1)
  1. LENALIDOMIDE [Suspect]
     Active Substance: LENALIDOMIDE
     Indication: Plasma cell myeloma

REACTIONS (9)
  - Diarrhoea haemorrhagic [Recovered/Resolved]
  - Graft versus host disease [Unknown]
  - Severe acute respiratory syndrome [Recovered/Resolved]
  - Tongue disorder [Recovered/Resolved]
  - Anorectal polyp [Not Recovered/Not Resolved]
  - Skin lesion [Recovered/Resolved]
  - Bronchitis [Recovered/Resolved]
  - Asthenia [Recovered/Resolved]
  - Nausea [Recovered/Resolved]

NARRATIVE: CASE EVENT DATE: 20221121
